FAERS Safety Report 22136232 (Version 1)
Quarter: 2023Q1

REPORT INFORMATION
  Report Type: Spontaneous
  Country: US (occurrence: US)
  Receive Date: 20230324
  Receipt Date: 20230324
  Transmission Date: 20230418
  Serious: No
  Sender: FDA-Public Use
  Company Number: US-MYLANLABS-2023M1029496

PATIENT
  Sex: Male

DRUGS (1)
  1. LIPITOR [Suspect]
     Active Substance: ATORVASTATIN CALCIUM
     Indication: Product used for unknown indication
     Dosage: UNK (STOPPED ABOUT 20 YEARS AGO )
     Route: 065

REACTIONS (4)
  - Erythema [Unknown]
  - Drug ineffective [Unknown]
  - Muscle spasms [Unknown]
  - Myalgia [Unknown]
